FAERS Safety Report 17388992 (Version 2)
Quarter: 2020Q2

REPORT INFORMATION
  Report Type: Spontaneous
  Country: CN (occurrence: CN)
  Receive Date: 20200207
  Receipt Date: 20200626
  Transmission Date: 20200713
  Serious: Yes (Other)
  Sender: FDA-Public Use
  Company Number: CN-CELGENEUS-CHN-20200201073

PATIENT
  Age: 74 Year
  Sex: Male
  Weight: 54 kg

DRUGS (8)
  1. NIAO DU QING KE LI [Concomitant]
     Indication: PRODUCT USED FOR UNKNOWN INDICATION
     Dosage: 5 GRAM
     Route: 065
     Dates: start: 20191218
  2. CARBOPLATIN. [Concomitant]
     Active Substance: CARBOPLATIN
     Indication: NON-SMALL CELL LUNG CANCER
     Dosage: 734 MILLIGRAM
     Route: 041
     Dates: start: 20190201, end: 20190427
  3. BGB-A317/TISLELIZUMAB [Concomitant]
     Active Substance: TISLELIZUMAB
     Dosage: 200 MILLIGRAM
     Route: 041
     Dates: start: 20200109
  4. ABRAXANE [Suspect]
     Active Substance: PACLITAXEL
     Indication: NON-SMALL CELL LUNG CANCER
     Dosage: 350 MILLIGRAM
     Route: 041
     Dates: start: 20190201, end: 20190513
  5. BGB-A317/TISLELIZUMAB [Concomitant]
     Active Substance: TISLELIZUMAB
     Dosage: 200 MILLIGRAM
     Route: 041
     Dates: end: 20200106
  6. JINSHUIBAO [Concomitant]
     Indication: PRODUCT USED FOR UNKNOWN INDICATION
     Route: 065
     Dates: start: 20191218
  7. ALDOXY [Concomitant]
     Indication: PRODUCT USED FOR UNKNOWN INDICATION
     Route: 065
     Dates: start: 20191218
  8. BGB-A317/TISLELIZUMAB [Concomitant]
     Active Substance: TISLELIZUMAB
     Indication: NON-SMALL CELL LUNG CANCER
     Dosage: 200 MILLIGRAM
     Route: 041
     Dates: start: 20190201, end: 20191125

REACTIONS (1)
  - Thinking abnormal [Recovered/Resolved]

NARRATIVE: CASE EVENT DATE: 20200101
